FAERS Safety Report 6933117-8 (Version None)
Quarter: 2010Q3

REPORT INFORMATION
  Report Type: 
  Country: None (occurrence: None)
  Receive Date: 20100819
  Receipt Date: 20100806
  Transmission Date: 20110219
  Serious: Yes (Death, Hospitalization, Other)
  Sender: FDA-Public Use
  Company Number: US-ELI_LILLY_AND_COMPANY-US201007000271

PATIENT
  Sex: Female

DRUGS (13)
  1. FORTEO [Suspect]
     Indication: OSTEOPOROSIS
     Dosage: 20 UG, DAILY (1/D)
     Route: 058
     Dates: start: 20100527
  2. METOPROLOL TARTRATE [Concomitant]
  3. AVAPRO [Concomitant]
  4. DILTIAZEM [Concomitant]
  5. NEURONTIN [Concomitant]
  6. ZOCOR [Concomitant]
  7. ZYRTEC [Concomitant]
  8. VOLTAREN [Concomitant]
     Dosage: 1 D/F, AS NEEDED
  9. FISH OIL [Concomitant]
  10. COENZYME Q10 [Concomitant]
  11. ESTER-C [Concomitant]
  12. VITAMIN D [Concomitant]
  13. VITAMIN B NOS [Concomitant]

REACTIONS (2)
  - CEREBROVASCULAR ACCIDENT [None]
  - DEATH [None]
